FAERS Safety Report 11574197 (Version 3)
Quarter: 2016Q4

REPORT INFORMATION
  Report Type: Spontaneous
  Country: US (occurrence: US)
  Receive Date: 20150930
  Receipt Date: 20161019
  Transmission Date: 20170206
  Serious: Yes (Other)
  Sender: FDA-Public Use
  Company Number: US-AMGEN-USASP2015100718

PATIENT
  Age: 69 Year
  Sex: Female

DRUGS (17)
  1. EPOGEN [Suspect]
     Active Substance: ERYTHROPOIETIN
     Indication: CHRONIC KIDNEY DISEASE
     Dosage: UNK
     Route: 065
     Dates: start: 2008
  2. EPOGEN [Suspect]
     Active Substance: ERYTHROPOIETIN
     Dosage: 2000 UNIT, PER WEEK
     Route: 065
  3. EPOGEN [Suspect]
     Active Substance: ERYTHROPOIETIN
     Dosage: 6000 UNIT, 3 TIMES/WK
     Route: 065
  4. VITAMINS C [Concomitant]
     Dosage: UNK
  5. TUMS [Concomitant]
     Active Substance: CALCIUM CARBONATE
     Dosage: UNK
  6. VITAMIN A [Concomitant]
     Active Substance: VITAMIN A
     Dosage: UNK
  7. FERRITIN [Concomitant]
     Active Substance: FERRITIN
     Dosage: UNK
  8. EPOGEN [Suspect]
     Active Substance: ERYTHROPOIETIN
     Dosage: 15000 UNIT, QWK
     Route: 065
     Dates: start: 2012, end: 201606
  9. OCUVITE [Concomitant]
     Active Substance: VITAMINS
     Dosage: UNK
  10. EPOGEN [Suspect]
     Active Substance: ERYTHROPOIETIN
     Dosage: 1000 UNIT, QWK
     Route: 065
     Dates: start: 2012, end: 2012
  11. EPOGEN [Suspect]
     Active Substance: ERYTHROPOIETIN
     Dosage: 15000 UNIT, UNK
     Route: 065
  12. NORMAL SALINE [Suspect]
     Active Substance: SODIUM CHLORIDE
     Indication: PRODUCT USED FOR UNKNOWN INDICATION
     Dosage: 500 CC
     Route: 065
  13. MIRCERA [Suspect]
     Active Substance: METHOXY POLYETHYLENE GLYCOL-EPOETIN BETA
     Indication: PRODUCT USED FOR UNKNOWN INDICATION
     Dosage: 75 MUG, UNK
     Route: 065
     Dates: start: 201606, end: 2016
  14. EPOGEN [Suspect]
     Active Substance: ERYTHROPOIETIN
     Dosage: 1000 UNIT, PER WEEK
     Route: 065
     Dates: start: 201303
  15. EPOGEN [Suspect]
     Active Substance: ERYTHROPOIETIN
     Dosage: 12000 UNIT, ONCE WEEKLY
     Route: 065
  16. RINGERS LACTATE [Suspect]
     Active Substance: CALCIUM CHLORIDE\POTASSIUM CHLORIDE\SODIUM CHLORIDE\SODIUM LACTATE
     Indication: PRODUCT USED FOR UNKNOWN INDICATION
     Dosage: 3000 UNIT, UNK
     Route: 065
  17. VENOFER [Concomitant]
     Active Substance: IRON SUCROSE
     Dosage: UNK

REACTIONS (20)
  - Retinal haemorrhage [Unknown]
  - Malignant hypertension [Unknown]
  - Cerebrovascular accident [Unknown]
  - Overdose [Unknown]
  - Electrolyte imbalance [Unknown]
  - Musculoskeletal pain [Unknown]
  - Drug effect decreased [Unknown]
  - Cardiac arrest [Unknown]
  - Dyspnoea [Recovering/Resolving]
  - Pain in extremity [Unknown]
  - Haemoglobin decreased [Unknown]
  - Eye haemorrhage [Unknown]
  - Pain [Unknown]
  - Hypoaesthesia [Unknown]
  - Blindness [Unknown]
  - Fluid retention [Unknown]
  - Weight increased [Unknown]
  - Muscle spasms [Unknown]
  - Weight abnormal [Unknown]
  - Blood pressure diastolic increased [Unknown]

NARRATIVE: CASE EVENT DATE: 2012
